FAERS Safety Report 12334042 (Version 1)
Quarter: 2016Q2

REPORT INFORMATION
  Report Type: Spontaneous
  Country: BR (occurrence: BR)
  Receive Date: 20160504
  Receipt Date: 20160504
  Transmission Date: 20160815
  Serious: Yes (Hospitalization)
  Sender: FDA-Public Use
  Company Number: BR-BAYER-2016-078571

PATIENT
  Age: 64 Year
  Sex: Male

DRUGS (4)
  1. ENALAPRIL [Suspect]
     Active Substance: ENALAPRIL
     Dosage: 5 MG, BID
  2. CLOPIDOGREL [Suspect]
     Active Substance: CLOPIDOGREL BISULFATE
     Dosage: 75 MG, QD
  3. ACETYLSALICYLIC ACID({=100 MG) [Suspect]
     Active Substance: ASPIRIN
     Dosage: 100 MG, QD
  4. SIMVASTATIN. [Suspect]
     Active Substance: SIMVASTATIN
     Dosage: 40 MG, QD

REACTIONS (9)
  - Arterial occlusive disease [None]
  - Arterial stenosis [None]
  - Cerebral infarction [None]
  - Pulmonary hypertension [None]
  - Cerebral ischaemia [None]
  - Cerebral artery embolism [None]
  - Ventricular hypokinesia [None]
  - Aortic occlusion [None]
  - Drug ineffective [None]
